FAERS Safety Report 11135525 (Version 1)
Quarter: 2015Q2

REPORT INFORMATION
  Report Type: Spontaneous
  Country: CN (occurrence: None)
  Receive Date: 20150521
  Receipt Date: 20150521
  Transmission Date: 20150821
  Serious: Yes (Life-Threatening)
  Sender: FDA-Public Use
  Company Number: COR_00295_2015

PATIENT

DRUGS (9)
  1. RANITIDINE [Concomitant]
     Active Substance: RANITIDINE\RANITIDINE HYDROCHLORIDE
  2. DEXAMETHASONE. [Concomitant]
     Active Substance: DEXAMETHASONE
  3. CHLORPHENIRAMINE [Concomitant]
     Active Substance: CHLORPHENIRAMINE
  4. GEMCITABINE [Suspect]
     Active Substance: GEMCITABINE\GEMCITABINE HYDROCHLORIDE
     Indication: NON-SMALL CELL LUNG CANCER STAGE III
     Dosage: 1000 MG/M2, THREE CYCLES, DAYS 1 AND 8 INTRAVENOUS (NOT OTHERWISE SPECIFIED)
     Route: 042
  5. ONDANSETRON [Concomitant]
     Active Substance: ONDANSETRON
  6. PACLITAXEL LIPOSOME [Suspect]
     Active Substance: PACLITAXEL
     Indication: NON-SMALL CELL LUNG CANCER STAGE III
     Dosage: THREE CYCLES, DAY 1 AND 8 AT 1-3 MG/ML
  7. METHYLPREDNISOLONE. [Concomitant]
     Active Substance: METHYLPREDNISOLONE
  8. PREDNISOLONE. [Concomitant]
     Active Substance: PREDNISOLONE
  9. CARBOPLATIN (CARBOPLATIN) [Suspect]
     Active Substance: CARBOPLATIN
     Indication: NON-SMALL CELL LUNG CANCER STAGE III
     Dosage: THREE CYCLES AUC 5 ON DAY 1 (NOT OTHERWISE SPECIFIED)
     Route: 042

REACTIONS (2)
  - Neutropenia [None]
  - Hypertransaminasaemia [None]
